FAERS Safety Report 8509939-9 (Version None)
Quarter: 2012Q3

REPORT INFORMATION
  Report Type: 
  Country: None (occurrence: None)
  Receive Date: 20120713
  Receipt Date: 20120703
  Transmission Date: 20120928
  Serious: Yes (Hospitalization)
  Sender: FDA-Public Use
  Company Number: GB-CELGENEUS-167-20785-12070327

PATIENT
  Age: 53 Year
  Sex: Male

DRUGS (3)
  1. CYCLOPHOSPHAMIDE [Concomitant]
     Route: 065
  2. THALIDOMIDE [Suspect]
     Route: 048
  3. DEXAMETHASONE [Concomitant]
     Route: 065

REACTIONS (1)
  - STRONGYLOIDIASIS [None]
